FAERS Safety Report 6188954-7 (Version None)
Quarter: 2009Q2

REPORT INFORMATION
  Report Type: 
  Country: None (occurrence: None)
  Receive Date: 20090513
  Receipt Date: 20090506
  Transmission Date: 20091009
  Serious: Yes (Death)
  Sender: FDA-Public Use
  Company Number: US-GENENTECH-281736

PATIENT
  Sex: Male
  Weight: 87.528 kg

DRUGS (10)
  1. BEVACIZUMAB [Suspect]
     Indication: NON-SMALL CELL LUNG CANCER
     Dosage: 15 MG/KG, Q3W
     Route: 042
     Dates: start: 20090331
  2. SENOKOT [Concomitant]
     Indication: CONSTIPATION
     Dosage: 1-2 TABLETS, QD
     Dates: start: 20090305, end: 20090409
  3. CARBOPLATIN [Concomitant]
     Indication: LUNG NEOPLASM MALIGNANT
     Dosage: 6 AUC, UNK
     Dates: start: 20090331, end: 20090331
  4. PERCOCET [Concomitant]
     Indication: PAIN
     Dosage: 10-325MG, Q4H PRN
     Route: 048
     Dates: start: 20090305, end: 20090409
  5. ACTIQ [Concomitant]
     Indication: PAIN
     Dosage: 200 A?G, UNK
     Route: 002
     Dates: start: 20090305, end: 20090309
  6. DURAGESIC-100 [Concomitant]
     Indication: PAIN
     Dosage: 75 A?G/HR, QOD
     Dates: start: 20090305, end: 20090409
  7. ALPRAZOLAM [Concomitant]
     Indication: ANXIETY
     Dosage: 0.25 MG, Q4-6H PRN
     Route: 048
     Dates: start: 20090305, end: 20090409
  8. DIFLUCAN [Concomitant]
     Indication: CANDIDIASIS
     Dosage: 100 MG, QD
     Route: 048
     Dates: start: 20090305, end: 20090409
  9. ALTIMA (UNK INGREDIENTS) [Concomitant]
     Indication: LUNG NEOPLASM MALIGNANT
     Dosage: 15 MG/KG, UNK
     Dates: start: 20090331, end: 20090331
  10. LYRICA [Concomitant]
     Indication: PAIN
     Dosage: 50 MG, UNK
     Dates: start: 20090305, end: 20090409

REACTIONS (1)
  - PULMONARY HAEMORRHAGE [None]
